FAERS Safety Report 23859169 (Version 1)
Quarter: 2024Q2

REPORT INFORMATION
  Report Type: Spontaneous
  Country: US (occurrence: None)
  Receive Date: 20240514
  Receipt Date: 20240514
  Transmission Date: 20240716
  Serious: Yes (Disabling)
  Sender: FDA-Public Use
  Company Number: None

PATIENT
  Sex: Male

DRUGS (2)
  1. COSMETICS [Suspect]
     Active Substance: COSMETICS
     Indication: Chalazion
     Dosage: DAILY TOPICAL
     Route: 061
  2. COSMETICS [Suspect]
     Active Substance: COSMETICS
     Indication: Skin papilloma

REACTIONS (3)
  - Application site scar [None]
  - Application site erosion [None]
  - Eyelid scar [None]
